FAERS Safety Report 11222964 (Version 1)
Quarter: 2015Q2

REPORT INFORMATION
  Report Type: Spontaneous
  Country: US (occurrence: US)
  Receive Date: 20150626
  Receipt Date: 20150626
  Transmission Date: 20150821
  Serious: Yes (Other)
  Sender: FDA-Public Use
  Company Number: US-ALTA-USB15-01635

PATIENT
  Age: 63 Year
  Sex: Female

DRUGS (2)
  1. ADVAIR HFA [Concomitant]
     Active Substance: FLUTICASONE PROPIONATE\SALMETEROL XINAFOATE
     Indication: PRODUCT USED FOR UNKNOWN INDICATION
     Dosage: UNK
     Route: 065
  2. HYQVIA [Suspect]
     Active Substance: HUMAN IMMUNOGLOBULIN G\HYALURONIDASE RECOMBINANT HUMAN
     Indication: IMMUNODEFICIENCY COMMON VARIABLE
     Dosage: FIRST DOSE OF RAMP UP, LEFT SIDE OF ABDOMEN, RIGHT SIDE OF ABDOMEN
     Route: 065
     Dates: start: 20150424

REACTIONS (3)
  - Drug administration error [Unknown]
  - Procedural complication [Unknown]
  - No adverse event [Unknown]

NARRATIVE: CASE EVENT DATE: 20150424
